FAERS Safety Report 6469924-8 (Version None)
Quarter: 2009Q4

REPORT INFORMATION
  Report Type: 
  Country: None (occurrence: None)
  Receive Date: 20091203
  Receipt Date: 20080702
  Transmission Date: 20100525
  Serious: Yes (Death, Other)
  Sender: FDA-Public Use
  Company Number: US-ELI_LILLY_AND_COMPANY-US200710006986

PATIENT
  Sex: Male
  Weight: 127.44 kg

DRUGS (7)
  1. BYETTA [Suspect]
     Indication: TYPE 2 DIABETES MELLITUS
     Dosage: 5 UG, 2/D
     Route: 058
     Dates: start: 20070920
  2. DYAZIDE [Concomitant]
     Dosage: UNK, UNKNOWN
  3. AVANDIA [Concomitant]
     Dosage: 4 MG, UNKNOWN
  4. ZETIA [Concomitant]
     Dosage: 10 MG, UNKNOWN
  5. LISINOPRIL [Concomitant]
     Dosage: 40 MG, UNKNOWN
  6. CADUET [Concomitant]
     Dosage: UNK, UNKNOWN
  7. ASPIRIN [Concomitant]
     Dosage: UNK, UNKNOWN

REACTIONS (5)
  - ARTERIOSCLEROSIS [None]
  - ELECTROMECHANICAL DISSOCIATION [None]
  - MALAISE [None]
  - NAUSEA [None]
  - RESPIRATORY DISTRESS [None]
